FAERS Safety Report 10374104 (Version 2)
Quarter: 2015Q1

REPORT INFORMATION
  Report Type: Spontaneous
  Country: US (occurrence: US)
  Receive Date: 20140810
  Receipt Date: 20150127
  Transmission Date: 20150720
  Serious: Yes (Death)
  Sender: FDA-Public Use
  Company Number: US-BRISTOL-MYERS SQUIBB COMPANY-21293329

PATIENT
  Age: 78 Year
  Sex: Female

DRUGS (21)
  1. PROTONIX [Concomitant]
     Active Substance: PANTOPRAZOLE SODIUM
  2. VASOTEC [Concomitant]
     Active Substance: ENALAPRIL MALEATE
  3. ZYRTEC [Concomitant]
     Active Substance: CETIRIZINE HYDROCHLORIDE
  4. LOMOTIL [Concomitant]
     Active Substance: ATROPINE SULFATE\DIPHENOXYLATE HYDROCHLORIDE
  5. NOVOLIN [Concomitant]
     Active Substance: INSULIN HUMAN
  6. MUCINEX [Concomitant]
     Active Substance: GUAIFENESIN
  7. SINGULAIR [Concomitant]
     Active Substance: MONTELUKAST SODIUM
  8. MAGNESIUM [Concomitant]
     Active Substance: MAGNESIUM
  9. NEURONTIN [Concomitant]
     Active Substance: GABAPENTIN
  10. VITAMIN D                          /00107901/ [Concomitant]
     Active Substance: ERGOCALCIFEROL
  11. SPIRIVA [Concomitant]
     Active Substance: TIOTROPIUM BROMIDE MONOHYDRATE
  12. COMPLEX 23 [Concomitant]
  13. LIPITOR [Concomitant]
     Active Substance: ATORVASTATIN CALCIUM
  14. BYETTA [Suspect]
     Active Substance: EXENATIDE
     Indication: TYPE 2 DIABETES MELLITUS
     Dosage: UNK
     Route: 065
     Dates: start: 200707
  15. MIRAPEX [Concomitant]
     Active Substance: PRAMIPEXOLE DIHYDROCHLORIDE
  16. NIACIN. [Concomitant]
     Active Substance: NIACIN
  17. GLYBURIDE. [Concomitant]
     Active Substance: GLYBURIDE
  18. XANAX [Concomitant]
     Active Substance: ALPRAZOLAM
  19. GLUCOSAMINE [Concomitant]
     Active Substance: GLUCOSAMINE
  20. THYROID [Concomitant]
     Active Substance: LEVOTHYROXINE\LIOTHYRONINE
  21. LEXAPRO [Concomitant]
     Active Substance: ESCITALOPRAM OXALATE

REACTIONS (1)
  - Pancreatic carcinoma [Fatal]

NARRATIVE: CASE EVENT DATE: 200711
